FAERS Safety Report 25131874 (Version 4)
Quarter: 2025Q3

REPORT INFORMATION
  Report Type: Report from Study
  Country: US (occurrence: US)
  Receive Date: 20250327
  Receipt Date: 20250923
  Transmission Date: 20251020
  Serious: Yes (Hospitalization, Other)
  Sender: ABBVIE
  Company Number: US-ABBVIE-6195122

PATIENT
  Age: 70 Year
  Sex: Male

DRUGS (2)
  1. SKYRIZI [Suspect]
     Active Substance: RISANKIZUMAB-RZAA
     Indication: Crohn^s disease
     Route: 058
     Dates: start: 20241107, end: 202507
  2. SKYRIZI [Suspect]
     Active Substance: RISANKIZUMAB-RZAA
     Route: 058
     Dates: start: 20250827

REACTIONS (9)
  - Stoma site oedema [Recovering/Resolving]
  - Diarrhoea [Unknown]
  - Feeling hot [Unknown]
  - Gastroenteritis viral [Recovered/Resolved]
  - Ileostomy closure [Recovering/Resolving]
  - Stoma site oedema [Recovered/Resolved]
  - Colorectostomy [Recovering/Resolving]
  - Gastric infection [Recovering/Resolving]
  - Stoma creation [Unknown]

NARRATIVE: CASE EVENT DATE: 20250302
